FAERS Safety Report 17364699 (Version 1)
Quarter: 2020Q1

REPORT INFORMATION
  Report Type: Spontaneous
  Country: US (occurrence: US)
  Receive Date: 20200204
  Receipt Date: 20200204
  Transmission Date: 20200409
  Serious: No
  Sender: FDA-Public Use
  Company Number: US-STRIDES ARCOLAB LIMITED-2019SP012543

PATIENT
  Age: 47 Year
  Sex: Male

DRUGS (12)
  1. KRATOM [Concomitant]
     Active Substance: HERBALS\MITRAGYNINE
     Indication: ALCOHOL USE DISORDER
     Dosage: 15 GRAM
     Route: 065
  2. CHLORDIAZEPOXIDE. [Concomitant]
     Active Substance: CHLORDIAZEPOXIDE
     Indication: WITHDRAWAL SYNDROME
     Dosage: UNK
     Route: 048
  3. DULOXETINE. [Concomitant]
     Active Substance: DULOXETINE
     Indication: WITHDRAWAL SYNDROME
     Dosage: UNK
     Route: 065
  4. LORAZEPAM. [Concomitant]
     Active Substance: LORAZEPAM
     Indication: WITHDRAWAL SYNDROME
     Dosage: UNK
     Route: 042
  5. GABAPENTIN. [Suspect]
     Active Substance: GABAPENTIN
     Indication: WITHDRAWAL SYNDROME
     Dosage: UNK
     Route: 065
  6. PHENIBUT [Concomitant]
     Active Substance: DIETARY SUPPLEMENT
     Indication: PAIN
  7. PHENOBARBITAL. [Concomitant]
     Active Substance: PHENOBARBITAL
     Indication: WITHDRAWAL SYNDROME
     Dosage: UNK, SINGLE
     Route: 065
  8. PHENOBARBITAL. [Concomitant]
     Active Substance: PHENOBARBITAL
     Dosage: UNK
     Route: 048
  9. KRATOM [Concomitant]
     Active Substance: HERBALS\MITRAGYNINE
     Indication: PAIN
  10. PHENIBUT [Concomitant]
     Active Substance: DIETARY SUPPLEMENT
     Indication: ALCOHOL USE DISORDER
     Dosage: UNK (APPROXIMATELY 2 GRAMS)
     Route: 065
  11. BACLOFEN. [Suspect]
     Active Substance: BACLOFEN
     Indication: WITHDRAWAL SYNDROME
     Dosage: UNK
     Route: 065
  12. BUPROPION. [Concomitant]
     Active Substance: BUPROPION
     Indication: WITHDRAWAL SYNDROME
     Dosage: UNK
     Route: 065

REACTIONS (1)
  - Off label use [Unknown]
